FAERS Safety Report 23587256 (Version 1)
Quarter: 2024Q1

REPORT INFORMATION
  Report Type: Report from Study
  Country: US (occurrence: US)
  Receive Date: 20240301
  Receipt Date: 20240301
  Transmission Date: 20240410
  Serious: Yes (Death, Hospitalization)
  Sender: FDA-Public Use
  Company Number: US-ABBVIE-5660013

PATIENT
  Sex: Male
  Weight: 63.502 kg

DRUGS (1)
  1. CREON [Suspect]
     Active Substance: PANCRELIPASE AMYLASE\PANCRELIPASE LIPASE\PANCRELIPASE PROTEASE
     Indication: Pancreatic carcinoma
     Dosage: FORM STRENGTH: 36000 UNIT?FREQUENCY TEXT: 3 TO 4 CAPSULES PER DAY? START DATE TEXT: EITHER NOV-20...
     Route: 048
     Dates: end: 20231226

REACTIONS (1)
  - Pancreatic carcinoma stage IV [Fatal]
